FAERS Safety Report 23448640 (Version 1)
Quarter: 2024Q1

REPORT INFORMATION
  Report Type: Spontaneous
  Country: US (occurrence: None)
  Receive Date: 20240127
  Receipt Date: 20240127
  Transmission Date: 20240410
  Serious: No
  Sender: FDA-Public Use
  Company Number: 2024A020040

PATIENT
  Sex: Female
  Weight: 54.5 kg

DRUGS (11)
  1. CALQUENCE [Suspect]
     Active Substance: ACALABRUTINIB
     Indication: B-cell lymphoma
     Route: 048
     Dates: start: 20231110
  2. FISH OIL [Concomitant]
     Active Substance: FISH OIL
  3. VITAMINS [Concomitant]
     Active Substance: VITAMINS
  4. DEXLANSOPRAZOLE [Concomitant]
     Active Substance: DEXLANSOPRAZOLE
  5. FELODIPINE [Concomitant]
     Active Substance: FELODIPINE
  6. LISINOPRIL [Concomitant]
     Active Substance: LISINOPRIL
  7. MIRALAX [Concomitant]
     Active Substance: POLYETHYLENE GLYCOL 3350
  8. PRAVASTATIN [Concomitant]
     Active Substance: PRAVASTATIN
  9. SPIRONOLACTONE [Concomitant]
     Active Substance: SPIRONOLACTONE
  10. VITAMIN D3 [Concomitant]
     Active Substance: CHOLECALCIFEROL
  11. VITAMIN E [Concomitant]
     Active Substance: .ALPHA.-TOCOPHEROL

REACTIONS (1)
  - Abdominal discomfort [Not Recovered/Not Resolved]
